FAERS Safety Report 5197541-9 (Version None)
Quarter: 2007Q1

REPORT INFORMATION
  Report Type: 
  Country: None (occurrence: None)
  Receive Date: 20070103
  Receipt Date: 20061222
  Transmission Date: 20070707
  Serious: Yes (Hospitalization, Other)
  Sender: FDA-Public Use
  Company Number: JP-PFIZER INC-2006131921

PATIENT
  Sex: Female
  Weight: 58 kg

DRUGS (7)
  1. LIPITOR [Suspect]
     Indication: HYPERCHOLESTEROLAEMIA
     Route: 048
  2. NORVASC [Suspect]
     Indication: HYPERTENSION
     Route: 048
  3. FLOMOX [Suspect]
     Indication: PYREXIA
     Route: 048
     Dates: start: 20061001, end: 20061009
  4. MUCOSOLVAN [Suspect]
     Indication: PYREXIA
     Route: 048
     Dates: start: 20061001, end: 20061009
  5. CALONAL [Suspect]
     Indication: PYREXIA
     Route: 048
     Dates: start: 20061001, end: 20061009
  6. FOSMICIN S [Suspect]
     Indication: PYREXIA
     Route: 042
     Dates: start: 20061001, end: 20061009
  7. DRUG, UNSPECIFIED [Concomitant]
     Route: 065

REACTIONS (9)
  - CHOLECYSTITIS [None]
  - CHOLELITHIASIS [None]
  - HEPATIC FUNCTION ABNORMAL [None]
  - HEPATIC STEATOSIS [None]
  - HEPATITIS [None]
  - JAUNDICE CHOLESTATIC [None]
  - LIVER DISORDER [None]
  - PYREXIA [None]
  - VIRAL INFECTION [None]
